FAERS Safety Report 7901099-8 (Version None)
Quarter: 2011Q4

REPORT INFORMATION
  Report Type: 
  Country: None (occurrence: None)
  Receive Date: 20111108
  Receipt Date: 20111103
  Transmission Date: 20120403
  Serious: Yes (Other)
  Sender: FDA-Public Use
  Company Number: DE-SANOFI-AVENTIS-2011SA072546

PATIENT
  Sex: Male

DRUGS (3)
  1. MULTAQ [Suspect]
     Route: 048
     Dates: end: 20110101
  2. ALL OTHER THERAPEUTIC PRODUCTS [Concomitant]
     Indication: PLASMACYTOMA
     Route: 065
  3. ALL OTHER THERAPEUTIC PRODUCTS [Concomitant]
     Route: 065

REACTIONS (2)
  - INTERSTITIAL LUNG DISEASE [None]
  - DRUG INEFFECTIVE [None]
